FAERS Safety Report 17590818 (Version 1)
Quarter: 2020Q1

REPORT INFORMATION
  Report Type: Spontaneous
  Country: US (occurrence: US)
  Receive Date: 20200325
  Receipt Date: 20200325
  Transmission Date: 20200409
  Serious: No
  Sender: FDA-Public Use
  Company Number: None

PATIENT
  Age: 30 Year
  Sex: Male

DRUGS (1)
  1. ARIPIPRAZOLE (ARIPIPRAZOLE 15MG TAB) [Suspect]
     Active Substance: ARIPIPRAZOLE
     Route: 048
     Dates: start: 20190913, end: 20190916

REACTIONS (3)
  - Akathisia [None]
  - Restlessness [None]
  - Agitation [None]

NARRATIVE: CASE EVENT DATE: 20190916
